FAERS Safety Report 5887150-8 (Version None)
Quarter: 2008Q3

REPORT INFORMATION
  Report Type: 
  Country: None (occurrence: None)
  Receive Date: 20080917
  Receipt Date: 20080828
  Transmission Date: 20090109
  Serious: Yes (Hospitalization)
  Sender: FDA-Public Use
  Company Number: JP-MERCK-0809USA00097

PATIENT
  Age: 74 Year
  Sex: Male

DRUGS (4)
  1. PEPCID RPD [Suspect]
     Route: 048
     Dates: start: 20030630, end: 20070830
  2. PEPCID [Suspect]
     Route: 048
     Dates: start: 20070831, end: 20080826
  3. LOXONIN [Suspect]
     Route: 048
  4. SINEMET [Suspect]
     Indication: PARKINSON'S DISEASE
     Route: 048
     Dates: start: 20070730

REACTIONS (1)
  - RENAL DISORDER [None]
